FAERS Safety Report 8888106 (Version 1)
Quarter: 2012Q4

REPORT INFORMATION
  Report Type: 
  Country: ES (occurrence: ES)
  Receive Date: 20121106
  Receipt Date: 20121106
  Transmission Date: 20130627
  Serious: Yes (Hospitalization)
  Sender: FDA-Public Use
  Company Number: ES-BAYER-2012-112751

PATIENT
  Age: 47 Year
  Sex: Female

DRUGS (3)
  1. BETAFERON [Suspect]
     Indication: SECONDARY PROGRESSIVE MULTIPLE SCLEROSIS
     Dosage: 250 mcg/mL, UNK
     Route: 058
     Dates: start: 20030904, end: 20120831
  2. EUTIROX [Concomitant]
     Indication: HYPOTHYROIDISM
     Dosage: 100 mg, QD
     Route: 048
     Dates: start: 2010
  3. ORFIDAL [Concomitant]
     Indication: INSOMNIA
     Dosage: 1 mg, QD
     Route: 048
     Dates: start: 2002

REACTIONS (4)
  - Vasculitis [Recovering/Resolving]
  - Cutaneous vasculitis [Recovering/Resolving]
  - Ocular vasculitis [Recovering/Resolving]
  - Renal vasculitis [Recovering/Resolving]
